FAERS Safety Report 19755955 (Version 1)
Quarter: 2021Q3

REPORT INFORMATION
  Report Type: Spontaneous
  Country: JP (occurrence: JP)
  Receive Date: 20210827
  Receipt Date: 20210827
  Transmission Date: 20211014
  Serious: Yes (Other)
  Sender: FDA-Public Use
  Company Number: JP-OTSUKA-2021_029357

PATIENT
  Age: 45 Year
  Sex: Male

DRUGS (3)
  1. SAMSCA [Suspect]
     Active Substance: TOLVAPTAN
     Dosage: 30MG, DAILY DOSE
     Route: 048
     Dates: start: 20210820
  2. SAMSCA [Suspect]
     Active Substance: TOLVAPTAN
     Dosage: 30MG, DAILY DOSE
     Route: 048
     Dates: start: 20210816
  3. SAMSCA [Suspect]
     Active Substance: TOLVAPTAN
     Indication: CONGENITAL CYSTIC KIDNEY DISEASE
     Dosage: 45MG, DAILY DOSE
     Route: 048
     Dates: start: 20210817

REACTIONS (1)
  - Pancytopenia [Not Recovered/Not Resolved]

NARRATIVE: CASE EVENT DATE: 20210817
